FAERS Safety Report 19502163 (Version 4)
Quarter: 2023Q4

REPORT INFORMATION
  Report Type: Spontaneous
  Country: US (occurrence: US)
  Receive Date: 20210707
  Receipt Date: 20231025
  Transmission Date: 20240110
  Serious: Yes (Hospitalization, Other)
  Sender: FDA-Public Use
  Company Number: US-GILEAD-2021-0539466

PATIENT
  Age: 27 Year
  Sex: Male
  Weight: 72.562 kg

DRUGS (46)
  1. VIREAD [Suspect]
     Active Substance: TENOFOVIR DISOPROXIL FUMARATE
     Indication: HIV infection
     Dosage: UNK
     Route: 048
     Dates: start: 20040629, end: 20060425
  2. VIREAD [Suspect]
     Active Substance: TENOFOVIR DISOPROXIL FUMARATE
     Dosage: UNK
     Route: 065
     Dates: start: 20160221, end: 20170115
  3. ATRIPLA [Suspect]
     Active Substance: EFAVIRENZ\EMTRICITABINE\TENOFOVIR DISOPROXIL FUMARATE
     Indication: HIV infection
     Dosage: UNK
     Route: 048
     Dates: start: 2004
  4. ATRIPLA [Suspect]
     Active Substance: EFAVIRENZ\EMTRICITABINE\TENOFOVIR DISOPROXIL FUMARATE
     Dosage: UNK
     Route: 065
     Dates: start: 201109, end: 201205
  5. TRUVADA [Suspect]
     Active Substance: EMTRICITABINE\TENOFOVIR DISOPROXIL FUMARATE
     Indication: HIV infection
     Dosage: UNK
     Route: 048
     Dates: start: 2004
  6. TRUVADA [Suspect]
     Active Substance: EMTRICITABINE\TENOFOVIR DISOPROXIL FUMARATE
     Dosage: UNK
     Route: 048
     Dates: start: 20060426, end: 201109
  7. TRUVADA [Suspect]
     Active Substance: EMTRICITABINE\TENOFOVIR DISOPROXIL FUMARATE
     Dosage: UNK
     Route: 048
     Dates: start: 201205, end: 20160221
  8. TRUVADA [Suspect]
     Active Substance: EMTRICITABINE\TENOFOVIR DISOPROXIL FUMARATE
     Dosage: UNK
     Route: 048
     Dates: start: 20170201, end: 201705
  9. DESCOVY [Concomitant]
     Active Substance: EMTRICITABINE\TENOFOVIR ALAFENAMIDE FUMARATE
  10. COBICISTAT [Concomitant]
     Active Substance: COBICISTAT
  11. ISENTRESS [Concomitant]
     Active Substance: RALTEGRAVIR POTASSIUM
  12. NORVIR [Concomitant]
     Active Substance: RITONAVIR
  13. PREZCOBIX [Concomitant]
     Active Substance: COBICISTAT\DARUNAVIR ETHANOLATE
  14. REYATAZ [Concomitant]
     Active Substance: ATAZANAVIR SULFATE
  15. SUSTIVA [Concomitant]
     Active Substance: EFAVIRENZ
  16. TRIZIVIR [Concomitant]
     Active Substance: ABACAVIR SULFATE\LAMIVUDINE\ZIDOVUDINE
  17. ATAZANAVIR [Concomitant]
     Active Substance: ATAZANAVIR
  18. DOVATO [Concomitant]
     Active Substance: DOLUTEGRAVIR SODIUM\LAMIVUDINE
  19. RITONAVIR [Concomitant]
     Active Substance: RITONAVIR
  20. TIVICAY [Concomitant]
     Active Substance: DOLUTEGRAVIR SODIUM
  21. CEFAZOLIN [Concomitant]
     Active Substance: CEFAZOLIN
  22. CLINDAMYCIN [Concomitant]
     Active Substance: CLINDAMYCIN
  23. DEXTROSE [Concomitant]
     Active Substance: DEXTROSE\DEXTROSE MONOHYDRATE
  24. DIBUCAINE [Concomitant]
     Active Substance: DIBUCAINE
  25. DOCUSATE [Concomitant]
     Active Substance: DOCUSATE
  26. ENOXAPARIN [Concomitant]
     Active Substance: ENOXAPARIN
  27. FLUOCINONIDE [Concomitant]
     Active Substance: FLUOCINONIDE
  28. GENTAMICIN [Concomitant]
     Active Substance: GENTAMICIN
  29. GUAIFENESIN [Concomitant]
     Active Substance: GUAIFENESIN
  30. LEVOFLOXACIN [Concomitant]
     Active Substance: LEVOFLOXACIN
  31. LORATADINE [Concomitant]
     Active Substance: LORATADINE
  32. MARINOL [Concomitant]
     Active Substance: DRONABINOL
  33. MONTELUKAST [Concomitant]
     Active Substance: MONTELUKAST SODIUM
  34. OMEPRAZOLE [Concomitant]
     Active Substance: OMEPRAZOLE
  35. ONDANSETRON [Concomitant]
     Active Substance: ONDANSETRON
  36. PENICILLIN [Concomitant]
     Active Substance: PENICILLIN
  37. PROMETHAZINE [Concomitant]
     Active Substance: PROMETHAZINE HYDROCHLORIDE
  38. PSEUDOEPHEDRINE [Concomitant]
     Active Substance: PSEUDOEPHEDRINE
  39. ROBITUSSIN COUGH + COLD [Concomitant]
  40. RANITIDINE [Concomitant]
     Active Substance: RANITIDINE
  41. SODIUM CHLORIDE [Concomitant]
     Active Substance: SODIUM CHLORIDE
  42. SULFAMETHOXAZOLE [Concomitant]
     Active Substance: SULFAMETHOXAZOLE
  43. TRAZODONE [Concomitant]
     Active Substance: TRAZODONE HYDROCHLORIDE
  44. VANCOMYCIN [Concomitant]
     Active Substance: VANCOMYCIN
  45. ZOLPIDEM [Concomitant]
     Active Substance: ZOLPIDEM TARTRATE
  46. AMLODIPINE [Concomitant]
     Active Substance: AMLODIPINE BESYLATE

REACTIONS (12)
  - Chronic kidney disease [Not Recovered/Not Resolved]
  - Acute kidney injury [Recovered/Resolved]
  - Pain [Not Recovered/Not Resolved]
  - Emotional distress [Not Recovered/Not Resolved]
  - Anxiety [Not Recovered/Not Resolved]
  - Anhedonia [Not Recovered/Not Resolved]
  - Renal impairment [Not Recovered/Not Resolved]
  - Urinary tract infection [Unknown]
  - Fatigue [Unknown]
  - Osteopenia [Not Recovered/Not Resolved]
  - Anaemia [Not Recovered/Not Resolved]
  - Asthenia [Unknown]

NARRATIVE: CASE EVENT DATE: 20080527
